FAERS Safety Report 15481002 (Version 1)
Quarter: 2018Q4

REPORT INFORMATION
  Report Type: Spontaneous
  Country: SG (occurrence: SG)
  Receive Date: 20181010
  Receipt Date: 20181010
  Transmission Date: 20190205
  Serious: Yes (Hospitalization)
  Sender: FDA-Public Use
  Company Number: SG-TEVA-2018-SG-961423

PATIENT
  Age: 75 Year
  Sex: Male

DRUGS (7)
  1. LINAGLIPTIN [Concomitant]
     Active Substance: LINAGLIPTIN
     Route: 065
  2. ATORVASTATIN [Concomitant]
     Active Substance: ATORVASTATIN
     Route: 065
  3. AMLODIPINE [Suspect]
     Active Substance: AMLODIPINE BESYLATE
     Indication: INTENTIONAL OVERDOSE
     Dosage: INGESTED 28 TABLETS OF AMLODIPINE 5MG EACH (TOTAL DOSE: 140MG)
     Route: 048
  4. ATENOLOL. [Concomitant]
     Active Substance: ATENOLOL
     Route: 065
  5. NOVOMIX 30/70 [Suspect]
     Active Substance: INSULIN ASPART
     Indication: INTENTIONAL OVERDOSE
     Dosage: AT THE TIME OF OVERDOSE, INJECTED ONE AND A HALF-FILLED CARTRIDGES PENFILLS: 3ML EACH OF 100 UNIT/ML
     Route: 058
  6. AMLODIPINE [Suspect]
     Active Substance: AMLODIPINE BESYLATE
     Indication: SUICIDE ATTEMPT
  7. NOVOMIX 30/70 [Suspect]
     Active Substance: INSULIN ASPART
     Indication: SUICIDE ATTEMPT
     Dosage: USUAL DOSE: 36U AFTER BREAKFAST AND 16U AFTER DINNER; DAILY
     Route: 058

REACTIONS (6)
  - Suicide attempt [Recovered/Resolved]
  - Intentional overdose [Unknown]
  - Hypotension [Recovered/Resolved]
  - Tachycardia [Recovered/Resolved]
  - Hyperglycaemia [Recovered/Resolved]
  - Hypoglycaemia [Recovered/Resolved]
